FAERS Safety Report 13449551 (Version 1)
Quarter: 2017Q2

REPORT INFORMATION
  Report Type: Spontaneous
  Country: GR (occurrence: GR)
  Receive Date: 20170417
  Receipt Date: 20170417
  Transmission Date: 20170830
  Serious: Yes (Other)
  Sender: FDA-Public Use
  Company Number: GR-PFIZER INC-2017162247

PATIENT
  Age: 63 Year
  Sex: Female
  Weight: 92 kg

DRUGS (7)
  1. LYRICA [Suspect]
     Active Substance: PREGABALIN
     Indication: NEURALGIA
     Dosage: 75 MG, 1X/DAY
     Route: 048
     Dates: start: 20161101, end: 20170220
  2. OLARTAN PLUS [Concomitant]
     Indication: HYPERTENSION
     Dosage: 1 DF, 1X/DAY (40 MG/25 MG)
     Route: 048
     Dates: start: 2014
  3. CONCOR [Concomitant]
     Active Substance: BISOPROLOL FUMARATE
     Indication: HYPERTENSION
     Dosage: 5 MG, 1X/DAY
     Route: 048
     Dates: start: 2014
  4. SYMBICORT [Concomitant]
     Active Substance: BUDESONIDE\FORMOTEROL FUMARATE DIHYDRATE
     Indication: ASTHMA
     Dosage: 2 DF, 2X/DAY
     Route: 055
     Dates: start: 2014
  5. XANAX [Concomitant]
     Active Substance: ALPRAZOLAM
     Indication: ANXIETY DISORDER
     Dosage: 1 DF, 1X/DAY
     Route: 048
     Dates: start: 2013
  6. SEROXAT [Concomitant]
     Active Substance: PAROXETINE HYDROCHLORIDE
     Indication: DEPRESSION
     Dosage: 15 MG, 1X/DAY (0.5 DOSE DAILY)
     Route: 048
     Dates: start: 2013
  7. GALVUS [Suspect]
     Active Substance: VILDAGLIPTIN
     Indication: DIABETES MELLITUS
     Dosage: 50 MG, 2X/DAY
     Route: 048
     Dates: start: 20160901, end: 20170220

REACTIONS (2)
  - Pruritus [Recovering/Resolving]
  - Pemphigoid [Recovering/Resolving]

NARRATIVE: CASE EVENT DATE: 20161220
